FAERS Safety Report 8701505 (Version 2)
Quarter: 2013Q4

REPORT INFORMATION
  Report Type: Spontaneous
  Country: US (occurrence: US)
  Receive Date: 20120802
  Receipt Date: 20131031
  Transmission Date: 20140711
  Serious: Yes (Hospitalization, Other)
  Sender: FDA-Public Use
  Company Number: US-009507513-1207USA011469

PATIENT
  Age: 78 Year
  Sex: Female

DRUGS (6)
  1. ZOCOR [Suspect]
     Route: 048
  2. METHOTREXATE [Suspect]
     Dosage: UNK
     Route: 048
  3. DILTIAZEM HYDROCHLORIDE [Suspect]
  4. SPIRONOLACTONE [Suspect]
  5. PHENPROCOUMON [Suspect]
  6. [COMPOSITION UNSPECIFIED] [Concomitant]
     Route: 047

REACTIONS (7)
  - Renal failure [Unknown]
  - Toxicity to various agents [Unknown]
  - Mucosal inflammation [Unknown]
  - Dehydration [Unknown]
  - Chromaturia [Unknown]
  - Leukopenia [Unknown]
  - Anal haemorrhage [Unknown]
